FAERS Safety Report 12290248 (Version 1)
Quarter: 2016Q2

REPORT INFORMATION
  Report Type: Spontaneous
  Country: GB (occurrence: GB)
  Receive Date: 20160421
  Receipt Date: 20160421
  Transmission Date: 20160815
  Serious: Yes (Life-Threatening, Hospitalization)
  Sender: FDA-Public Use
  Company Number: GB-TEVA-652395ACC

PATIENT
  Age: 63 Year
  Sex: Female
  Weight: 65 kg

DRUGS (2)
  1. WARFARIN [Suspect]
     Active Substance: WARFARIN
  2. DAKTARIN [Interacting]
     Active Substance: MICONAZOLE NITRATE
     Indication: ORAL CANDIDIASIS
     Route: 048
     Dates: start: 20160128, end: 20160203

REACTIONS (2)
  - International normalised ratio increased [Recovered/Resolved]
  - Drug interaction [Unknown]

NARRATIVE: CASE EVENT DATE: 20160205
